FAERS Safety Report 13160437 (Version 6)
Quarter: 2017Q3

REPORT INFORMATION
  Report Type: Spontaneous
  Country: JP (occurrence: JP)
  Receive Date: 20170127
  Receipt Date: 20170927
  Transmission Date: 20171127
  Serious: Yes (Death, Hospitalization)
  Sender: FDA-Public Use
  Company Number: JP-ALLERGAN-1703190US

PATIENT
  Age: 3 Month
  Sex: Male
  Weight: 3.15 kg

DRUGS (13)
  1. URSODEOXYCHOLIC ACID - BP [Suspect]
     Active Substance: URSODIOL
     Indication: CHOLESTASIS
     Dosage: 12.5 MG, BID
     Route: 048
     Dates: start: 20161113, end: 20170106
  2. HEPTAVAX B [Suspect]
     Active Substance: HEPATITIS B VIRUS VACCINE
     Indication: PRODUCT USED FOR UNKNOWN INDICATION
     Dosage: 0.25 ML, SINGLE
     Route: 058
     Dates: start: 20170106, end: 20170106
  3. ALFAROL [Concomitant]
     Active Substance: ALFACALCIDOL
     Indication: RICKETS
     Dosage: 0.1 ?G, QD
     Route: 048
     Dates: start: 20161026
  4. TETRABIK [Suspect]
     Active Substance: DIPHTHERIA AND TETANUS TOXOIDS AND ACELLULAR PERTUSSIS ADSORBED AND INACTIVATED POLIOVIRUS VACCINE
     Indication: IMMUNISATION
     Dosage: 0.5 ML, SINGLE
     Route: 058
     Dates: start: 20170106, end: 20170106
  5. SYNAGIS [Concomitant]
     Active Substance: PALIVIZUMAB
     Indication: ANTIVIRAL PROPHYLAXIS
     Dosage: 0.4 ML, SINGLE
     Route: 030
     Dates: start: 20170106, end: 20170106
  6. ACTHIB/DTP [Concomitant]
     Dosage: UNK
     Route: 030
     Dates: start: 20170106, end: 20170106
  7. PREVENAR [Concomitant]
     Active Substance: PNEUMOCOCCAL 7-VALENT CONJUGATE VACCINE (DIPHTHERIA CRM197 PROTEIN)
     Indication: PRODUCT USED FOR UNKNOWN INDICATION
     Dosage: 0.5 ML, SINGLE
     Route: 051
     Dates: start: 20161219, end: 20161219
  8. SYNAGIS [Concomitant]
     Active Substance: PALIVIZUMAB
     Dosage: 0.37 ML, SINGLE
     Route: 030
     Dates: start: 20161219, end: 20161219
  9. INCREMIN [Concomitant]
     Active Substance: FERRIC PYROPHOSPHATE
     Indication: ANAEMIA NEONATAL
     Dosage: 2 ML, QD
     Route: 048
     Dates: start: 20161022
  10. PREVENAR [Concomitant]
     Active Substance: PNEUMOCOCCAL 7-VALENT CONJUGATE VACCINE (DIPHTHERIA CRM197 PROTEIN)
     Dosage: UNK
     Route: 030
     Dates: start: 20170106, end: 20170106
  11. PANVITAN [Concomitant]
     Indication: RICKETS
     Dosage: 0.2 G, QD
     Route: 048
     Dates: start: 20161026
  12. ACTHIB/DTP [Concomitant]
     Indication: PRODUCT USED FOR UNKNOWN INDICATION
     Dosage: 0.5 ML, QD
     Route: 058
     Dates: start: 20161219, end: 20161219
  13. THYRADIN [Concomitant]
     Active Substance: LEVOTHYROXINE
     Indication: HYPOTHYROIDISM
     Dosage: 5 ?G, QD
     Route: 048
     Dates: start: 20161102

REACTIONS (2)
  - Cardio-respiratory arrest [Fatal]
  - Sudden infant death syndrome [None]

NARRATIVE: CASE EVENT DATE: 20170110
